FAERS Safety Report 16057836 (Version 1)
Quarter: 2019Q1

REPORT INFORMATION
  Report Type: Spontaneous
  Country: US (occurrence: US)
  Receive Date: 20190311
  Receipt Date: 20190311
  Transmission Date: 20190418
  Serious: Yes (Other)
  Sender: FDA-Public Use
  Company Number: US-TEVA-2019-US-1020167

PATIENT
  Age: 51 Year
  Sex: Female

DRUGS (100)
  1. MAGNESIUM [Suspect]
     Active Substance: MAGNESIUM
     Indication: MIGRAINE
     Dosage: 800 MILLIGRAM DAILY;
     Dates: start: 2010
  2. MOBIC [Suspect]
     Active Substance: MELOXICAM
     Indication: ANTIINFLAMMATORY THERAPY
     Dosage: 15 MILLIGRAM DAILY;
     Dates: start: 2008
  3. NASOCORT [Suspect]
     Active Substance: BUDESONIDE
     Indication: SINUS DISORDER
     Dosage: 100 MICROGRAM DAILY; 2 SPRAY IN EACH NOSTRIL IN THE MORNING
     Dates: start: 2010
  4. PANTOPRAZOLE SODIUM. [Suspect]
     Active Substance: PANTOPRAZOLE SODIUM
     Indication: GASTROOESOPHAGEAL REFLUX DISEASE
     Dosage: 40 MILLIGRAM DAILY;
     Dates: start: 2011, end: 2017
  5. PREVALITE [Suspect]
     Active Substance: CHOLESTYRAMINE
     Indication: GASTROOESOPHAGEAL REFLUX DISEASE
     Dosage: 4 GRAM DAILY; 1 SCOOPS
     Dates: start: 2016
  6. SYNTHROID [Suspect]
     Active Substance: LEVOTHYROXINE SODIUM
     Indication: HYPOTHYROIDISM
     Dosage: 117.4286 MICROGRAM DAILY; EVERY DAY EXCEPT MONDAY
     Dates: start: 2012
  7. TRAMADOL. [Suspect]
     Active Substance: TRAMADOL
     Indication: INTERVERTEBRAL DISC PROTRUSION
  8. TRANSDERM SCOP [Suspect]
     Active Substance: SCOPOLAMINE
     Indication: MOTION SICKNESS
  9. TYLENOL [Suspect]
     Active Substance: ACETAMINOPHEN
     Indication: SPONDYLOLISTHESIS
  10. TYLENOL [Suspect]
     Active Substance: ACETAMINOPHEN
     Indication: OSTEOARTHRITIS
  11. LAMOTRIGINE. [Suspect]
     Active Substance: LAMOTRIGINE
     Indication: ANGER
     Dosage: 200 MILLIGRAM DAILY;
     Dates: start: 2010
  12. CITRACAL CALCIUM WITH VIATMIN D [Suspect]
     Active Substance: CALCIUM CITRATE\CHOLECALCIFEROL
     Indication: OSTEOPOROSIS
     Dates: start: 2005
  13. LAMOTRIGINE. [Suspect]
     Active Substance: LAMOTRIGINE
     Indication: AGGRESSION
  14. MAXALT [Suspect]
     Active Substance: RIZATRIPTAN BENZOATE
     Indication: MIGRAINE
     Dosage: 20 MICROGRAM DAILY; 90 FOR 90 DAYS
     Dates: start: 2010
  15. TYLENOL [Suspect]
     Active Substance: ACETAMINOPHEN
     Indication: COMPRESSION FRACTURE
  16. TYLENOL [Suspect]
     Active Substance: ACETAMINOPHEN
     Indication: OSTEOPOROSIS
  17. VITAMIN D3 [Suspect]
     Active Substance: CHOLECALCIFEROL
     Indication: BLOOD TEST ABNORMAL
     Dosage: 1000 IU (INTERNATIONAL UNIT) DAILY;
     Dates: start: 20100228
  18. LAMOTRIGINE. [Suspect]
     Active Substance: LAMOTRIGINE
     Indication: DEPRESSION
  19. FISH OIL [Suspect]
     Active Substance: FISH OIL
     Indication: ARTHRALGIA
  20. HYDROCODONE BITARTRATE AND ACETAMINOPHEN [Suspect]
     Active Substance: ACETAMINOPHEN\HYDROCODONE BITARTRATE
     Indication: OSTEOPOROSIS
  21. NASOCORT [Suspect]
     Active Substance: BUDESONIDE
     Indication: HYPERSENSITIVITY
     Dosage: 2 SPRAY IN EACH NOSTRIL IN THE MORNING
     Dates: start: 2005
  22. MISOPROSTOL. [Suspect]
     Active Substance: MISOPROSTOL
     Indication: HAEMORRHAGE PROPHYLAXIS
     Dosage: 400 MICROGRAM DAILY;
     Dates: start: 2017
  23. ONDANSETRON [Suspect]
     Active Substance: ONDANSETRON
     Indication: MOTION SICKNESS
  24. PANTOPRAZOLE SODIUM. [Suspect]
     Active Substance: PANTOPRAZOLE SODIUM
     Indication: GASTROOESOPHAGEAL REFLUX DISEASE
     Dosage: 40 MILLIGRAM DAILY;
     Dates: start: 2018
  25. TRIAMCINOLONE [Suspect]
     Active Substance: TRIAMCINOLONE
     Indication: PRURITUS
     Dates: start: 2015
  26. TURMERIC [CURCUMA LONGA RHIZOME] [Suspect]
     Active Substance: HERBALS\TURMERIC
     Indication: ARTHRITIS
  27. OXYBUTYNIN. [Suspect]
     Active Substance: OXYBUTYNIN CHLORIDE
     Dosage: 5 MILLIGRAM DAILY; AT NIGHT
     Dates: start: 2012
  28. GAS-X [Suspect]
     Active Substance: DIMETHICONE
     Indication: DYSPEPSIA
     Dosage: 2 CAPSULES 3 TO 5 TIMES A DAY BEFORE OR WITH MEALS
     Dates: start: 2017
  29. HYDROCODONE BITARTRATE AND ACETAMINOPHEN [Suspect]
     Active Substance: ACETAMINOPHEN\HYDROCODONE BITARTRATE
     Indication: BACK PAIN
  30. HYDROCODONE ACETAMIN [Suspect]
     Active Substance: ACETAMINOPHEN\HYDROCODONE BITARTRATE
     Indication: INTERVERTEBRAL DISC PROTRUSION
  31. LAMOTRIGINE. [Suspect]
     Active Substance: LAMOTRIGINE
     Indication: ANGER
     Dosage: 200 MILLIGRAM DAILY;
     Dates: start: 2010
  32. MAXALT [Suspect]
     Active Substance: RIZATRIPTAN BENZOATE
     Dosage: 20 MICROGRAM DAILY; 90 FOR 90 DAYS
     Dates: start: 2008
  33. METHOCARBAMOL. [Suspect]
     Active Substance: METHOCARBAMOL
     Indication: BACK PAIN
     Dosage: 1500 MILLIGRAM DAILY;
     Dates: start: 2015
  34. METHOCARBAMOL. [Suspect]
     Active Substance: METHOCARBAMOL
     Indication: SPONDYLOLISTHESIS
  35. MONISTAT [Suspect]
     Active Substance: MICONAZOLE NITRATE
     Indication: VULVOVAGINAL PRURITUS
     Dosage: 7 DAYS TREATMENT
     Dates: start: 2016
  36. MONISTAT [Suspect]
     Active Substance: MICONAZOLE NITRATE
     Dosage: 7 DAYS TREATMENT
     Dates: start: 2017
  37. EQUATE (IBUPROFEN) [Suspect]
     Active Substance: IBUPROFEN
     Indication: VULVOVAGINAL PRURITUS
     Dosage: 7 DAYS TREATMENT
     Dates: start: 2016
  38. NEXIUM [Suspect]
     Active Substance: ESOMEPRAZOLE MAGNESIUM
     Indication: DYSPEPSIA
  39. TRAMADOL. [Suspect]
     Active Substance: TRAMADOL
     Indication: COMPRESSION FRACTURE
  40. TYLENOL [Suspect]
     Active Substance: ACETAMINOPHEN
     Indication: BACK PAIN
     Dosage: 166.6667 MICROGRAM DAILY;
     Dates: start: 2015
  41. TURMERIC [CURCUMA LONGA RHIZOME] [Suspect]
     Active Substance: HERBALS\TURMERIC
     Indication: ANTIINFLAMMATORY THERAPY
     Dosage: AT NIGHT
     Dates: start: 2017
  42. DIAZEPAM. [Suspect]
     Active Substance: DIAZEPAM
     Indication: ANXIETY
     Dosage: 2-3 TIMES DAILY
     Dates: start: 2008
  43. PRISTIQ EXTENDED-RELEASE [Suspect]
     Active Substance: DESVENLAFAXINE SUCCINATE
     Indication: DEPRESSION
     Dosage: 100 MILLIGRAM DAILY;
     Dates: start: 2008
  44. PRISTIQ EXTENDED-RELEASE [Suspect]
     Active Substance: DESVENLAFAXINE SUCCINATE
     Indication: DEMENTIA
     Dosage: 100 MILLIGRAM DAILY;
     Dates: start: 20181012
  45. PRISTIQ EXTENDED-RELEASE [Suspect]
     Active Substance: DESVENLAFAXINE SUCCINATE
     Indication: MAJOR DEPRESSION
  46. HYDROCODONE BITARTRATE AND ACETAMINOPHEN [Suspect]
     Active Substance: ACETAMINOPHEN\HYDROCODONE BITARTRATE
     Indication: FRACTURE
  47. LAMOTRIGINE. [Suspect]
     Active Substance: LAMOTRIGINE
     Indication: DEPRESSION
  48. LORATIDINE [Suspect]
     Active Substance: LORATADINE
     Indication: RHINORRHOEA
     Dosage: 10 MICROGRAM DAILY;
     Dates: start: 2005
  49. METAMUCIL [Suspect]
     Active Substance: PLANTAGO SEED
     Indication: CONSTIPATION
     Dosage: 2 TABLESPOON WITH 1-7 CUPS OF WATER
     Dates: start: 2012
  50. METAMUCIL [Suspect]
     Active Substance: PLANTAGO SEED
     Dosage: 2 TABLESPOON WITH 1-7 CUPS OF WATER
     Dates: start: 2013
  51. NASONEX [Suspect]
     Active Substance: MOMETASONE FUROATE
     Indication: ALLERGIC SINUSITIS
     Dosage: 100 MICROGRAM DAILY; 2 SPRAY IN EACH NOSTRIL IN THE MORNING
     Dates: start: 2010
  52. NASONEX [Suspect]
     Active Substance: MOMETASONE FUROATE
     Dosage: 100 MICROGRAM DAILY; 2 SPRAY IN EACH NOSTRIL IN THE MORNING
     Dates: start: 2005
  53. TRAMADOL. [Suspect]
     Active Substance: TRAMADOL
     Indication: ARTHRALGIA
  54. TRAMADOL. [Suspect]
     Active Substance: TRAMADOL
     Indication: OSTEOPOROSIS
  55. LAMOTRIGINE. [Suspect]
     Active Substance: LAMOTRIGINE
     Indication: AGGRESSION
  56. HYDROCODONE BITARTRATE AND ACETAMINOPHEN [Suspect]
     Active Substance: ACETAMINOPHEN\HYDROCODONE BITARTRATE
     Indication: INTERVERTEBRAL DISC PROTRUSION
  57. HYDROCODONE BITARTRATE AND ACETAMINOPHEN [Suspect]
     Active Substance: ACETAMINOPHEN\HYDROCODONE BITARTRATE
     Indication: BACK PAIN
  58. MECLIZINE [Suspect]
     Active Substance: MECLIZINE HYDROCHLORIDE
     Indication: NAUSEA
     Dates: start: 2017
  59. MECLIZINE [Suspect]
     Active Substance: MECLIZINE HYDROCHLORIDE
     Indication: MOVEMENT DISORDER
  60. METHOCARBAMOL. [Suspect]
     Active Substance: METHOCARBAMOL
     Indication: FRACTURE
  61. METHOCARBAMOL. [Suspect]
     Active Substance: METHOCARBAMOL
     Indication: ARTHRITIS
  62. EQUATE (IBUPROFEN) [Suspect]
     Active Substance: IBUPROFEN
     Dosage: 7 DAYS TREATMENT
     Dates: start: 2017
  63. NEXIUM [Suspect]
     Active Substance: ESOMEPRAZOLE MAGNESIUM
     Indication: ABDOMINAL PAIN UPPER
     Dosage: 22.3 MICROGRAM DAILY; NIGHT AS NEEDED(TO... OF)SUB WITH PANTAPRAZOLE
     Dates: start: 2017
  64. PRISTIQ EXTENDED-RELEASE [Suspect]
     Active Substance: DESVENLAFAXINE SUCCINATE
     Dosage: 200 MILLIGRAM DAILY;
     Dates: start: 2008
  65. ROPINIROLE HCL [Suspect]
     Active Substance: ROPINIROLE HYDROCHLORIDE
     Indication: MUSCLE SPASMS
     Dosage: .5 MICROGRAM DAILY;
     Dates: start: 2012
  66. SYNTHROID [Suspect]
     Active Substance: LEVOTHYROXINE SODIUM
     Dosage: 117.4286 MICROGRAM DAILY; EVERY DAY EXCEPT MONDAY
     Dates: start: 2013
  67. TOPAMAX [Suspect]
     Active Substance: TOPIRAMATE
     Indication: MIGRAINE
     Dosage: 200 MILLIGRAM DAILY; 100 MILLIGRAM MORNING/100 MILLIGRAM AT NIGHT
     Dates: start: 200910
  68. TRAMADOL. [Suspect]
     Active Substance: TRAMADOL
     Indication: BACK PAIN
     Dosage: 400 MICROGRAM DAILY; STARTED WITH 50 MG IN 2013 INCREASED TO 100MG IN 2017
     Dates: start: 2013, end: 2017
  69. TRAMADOL. [Suspect]
     Active Substance: TRAMADOL
     Indication: INTERVERTEBRAL DISC PROTRUSION
  70. TYLENOL [Suspect]
     Active Substance: ACETAMINOPHEN
     Indication: SACROILIITIS
  71. TURMERIC [CURCUMA LONGA RHIZOME] [Suspect]
     Active Substance: HERBALS\TURMERIC
     Indication: DEPRESSION
  72. ARMODAFINIL. [Suspect]
     Active Substance: ARMODAFINIL
     Indication: SLEEP APNOEA SYNDROME
     Dosage: 150 MILLIGRAM DAILY;
     Dates: start: 2015
  73. ASTEPRO [Suspect]
     Active Substance: AZELASTINE HYDROCHLORIDE
     Indication: SINUS DISORDER
     Dosage: .318  DAILY;
     Dates: start: 2010
  74. BEANO [Suspect]
     Active Substance: ASPERGILLUS NIGER .ALPHA.-GALACTOSIDASE
     Dosage: 4-6 TIME A DAY
     Dates: start: 2012
  75. COLACE [Suspect]
     Active Substance: DOCUSATE SODIUM
     Indication: CONSTIPATION PROPHYLAXIS
     Dosage: 200 MILLIGRAM DAILY; SINCE 2012 OR 2013
  76. HYDROCODONE BITARTRATE AND ACETAMINOPHEN [Suspect]
     Active Substance: ACETAMINOPHEN\HYDROCODONE BITARTRATE
     Indication: SCIATICA
  77. LIPO FLAVONOID PLUS [Suspect]
     Active Substance: DIETARY SUPPLEMENT
     Indication: GASTRIC MUCOSAL HYPERTROPHY
     Dates: start: 2016
  78. MISOPROSTOL. [Suspect]
     Active Substance: MISOPROSTOL
     Dosage: 400 MICROGRAM DAILY;
     Dates: start: 2018
  79. ONDANSETRON [Suspect]
     Active Substance: ONDANSETRON
     Indication: NAUSEA
     Dates: start: 2017
  80. TRAMADOL. [Suspect]
     Active Substance: TRAMADOL
     Indication: SPONDYLOLISTHESIS
     Dosage: 400 MICROGRAM DAILY; STARTED WITH 50 MG IN 2013 INCREASED TO 100MG IN 2017
     Dates: start: 2013
  81. TRAMADOL. [Suspect]
     Active Substance: TRAMADOL
     Indication: OSTEOARTHRITIS
  82. TYLENOL [Suspect]
     Active Substance: ACETAMINOPHEN
     Indication: INTERVERTEBRAL DISC PROTRUSION
  83. TYLENOL [Suspect]
     Active Substance: ACETAMINOPHEN
     Indication: INTERVERTEBRAL DISC PROTRUSION
  84. CLINDAMYCIN HCL [Suspect]
     Active Substance: CLINDAMYCIN HYDROCHLORIDE
     Indication: INFECTION PROPHYLAXIS
     Dates: start: 2009
  85. FISH OIL [Suspect]
     Active Substance: FISH OIL
     Indication: JOINT STIFFNESS
     Dates: start: 2017
  86. FISH OIL [Suspect]
     Active Substance: FISH OIL
     Indication: JOINT SWELLING
  87. FLUOCINONIDE CREAM [Suspect]
     Active Substance: FLUOCINONIDE
     Indication: PRURITUS
     Dosage: AFTER SHOWER
     Dates: start: 2010
  88. HYDROCODONE BITARTRATE AND ACETAMINOPHEN [Suspect]
     Active Substance: ACETAMINOPHEN\HYDROCODONE BITARTRATE
     Indication: ARTHRITIS
     Dosage: 5-352 MG
     Dates: start: 2017
  89. HYDROCODONE BITARTRATE AND ACETAMINOPHEN [Suspect]
     Active Substance: ACETAMINOPHEN\HYDROCODONE BITARTRATE
     Indication: SPINAL OSTEOARTHRITIS
  90. HYDROCODONE BITARTRATE AND ACETAMINOPHEN [Suspect]
     Active Substance: ACETAMINOPHEN\HYDROCODONE BITARTRATE
     Indication: ARTHROPATHY
  91. LIPO FLAVONOID PLUS [Suspect]
     Active Substance: DIETARY SUPPLEMENT
     Indication: TINNITUS
  92. METHOCARBAMOL. [Suspect]
     Active Substance: METHOCARBAMOL
     Indication: MUSCLE SPASMS
  93. ONDANSETRON [Suspect]
     Active Substance: ONDANSETRON
     Indication: NAUSEA
     Dosage: 8 MICROGRAM DAILY;
     Dates: start: 2017
  94. PANTOPRAZOLE SODIUM. [Suspect]
     Active Substance: PANTOPRAZOLE SODIUM
     Indication: DYSPEPSIA
  95. TRANSDERM SCOP [Suspect]
     Active Substance: SCOPOLAMINE
     Indication: NAUSEA
     Dosage: .5 MILLIGRAM DAILY; 1 PATCH EVERY 3 DAYS AS NEEDED
     Dates: start: 2017
  96. OXYBUTYNIN. [Suspect]
     Active Substance: OXYBUTYNIN CHLORIDE
     Indication: INCONTINENCE
     Dosage: 15 MILLIGRAM DAILY; APPROX 2012 OR 2013, AT NIGHT
     Dates: start: 2012
  97. B-12 SUBLINGUAL [Suspect]
     Active Substance: CYANOCOBALAMIN
     Indication: NERVOUS SYSTEM DISORDER
     Route: 060
  98. FISH OIL [Suspect]
     Active Substance: FISH OIL
     Indication: MUSCULOSKELETAL DISCOMFORT
  99. GAS-X [Suspect]
     Active Substance: DIMETHICONE
     Indication: FLATULENCE
  100. LORATIDINE [Suspect]
     Active Substance: LORATADINE
     Indication: HYPERSENSITIVITY
     Dosage: 10 MICROGRAM DAILY;
     Dates: start: 2017

REACTIONS (13)
  - Anxiety [Unknown]
  - Impaired driving ability [Not Recovered/Not Resolved]
  - Vertigo [Not Recovered/Not Resolved]
  - Depression [Unknown]
  - Pain [Unknown]
  - Inadequate analgesia [None]
  - Migraine [None]
  - Ill-defined disorder [Unknown]
  - Bedridden [Not Recovered/Not Resolved]
  - Constipation [Unknown]
  - Abdominal pain upper [Unknown]
  - Gastrointestinal disorder [Unknown]
  - Dizziness [Not Recovered/Not Resolved]

NARRATIVE: CASE EVENT DATE: 201704
